FAERS Safety Report 21799271 (Version 1)
Quarter: 2022Q4

REPORT INFORMATION
  Report Type: Spontaneous
  Country: US (occurrence: None)
  Receive Date: 20221229
  Receipt Date: 20221229
  Transmission Date: 20230112
  Serious: Yes (Other)
  Sender: FDA-Public Use
  Company Number: None

PATIENT
  Sex: Female

DRUGS (2)
  1. TACROLIMUS [Suspect]
     Active Substance: TACROLIMUS
     Indication: Liver transplant
     Dosage: 1 MG ORAL?TAKE 2 CAPSULES (2 MG TOTAL) BY MOUTH EVERY MORNING AND 1 CAPSULE (1 MG TOTAL) EVERY EVENI
     Route: 048
     Dates: start: 20220621
  2. MYCOPHENOLIC ACID [Concomitant]
     Active Substance: MYCOPHENOLIC ACID

REACTIONS (1)
  - Bronchitis [None]
